FAERS Safety Report 9479004 (Version 1)
Quarter: 2013Q3

REPORT INFORMATION
  Report Type: Spontaneous
  Country: US (occurrence: US)
  Receive Date: 20130827
  Receipt Date: 20130827
  Transmission Date: 20140515
  Serious: No
  Sender: FDA-Public Use
  Company Number: US-BAYER-2013-102470

PATIENT
  Sex: Male
  Weight: 93 kg

DRUGS (4)
  1. BETASERON [Suspect]
     Dosage: 0.25 MG, QOD
     Route: 058
  2. CARBAMAZEPIN [Concomitant]
     Dosage: 100 MG, ER
  3. MAGNESIUM [Concomitant]
     Dosage: 500 MG, UNK
  4. DIMETHYL FUMARATE [Concomitant]

REACTIONS (1)
  - Drug ineffective [Unknown]
